FAERS Safety Report 14139888 (Version 1)
Quarter: 2017Q4

REPORT INFORMATION
  Report Type: Report from Study
  Country: None (occurrence: US)
  Receive Date: 20171030
  Receipt Date: 20171030
  Transmission Date: 20180321
  Serious: Yes (Hospitalization)
  Sender: FDA-Public Use
  Company Number: US-ABBVIE-17K-163-2049073-00

PATIENT
  Age: 45 Year
  Sex: Female
  Weight: 108.96 kg

DRUGS (3)
  1. CYMBALTA [Concomitant]
     Active Substance: DULOXETINE HYDROCHLORIDE
     Indication: DEPRESSION
  2. HUMIRA [Suspect]
     Active Substance: ADALIMUMAB
     Indication: CROHN^S DISEASE
     Route: 058
     Dates: start: 201607
  3. FLU VACCINATION [Concomitant]
     Active Substance: INFLUENZA VIRUS VACCINE
     Indication: PRODUCT USED FOR UNKNOWN INDICATION
     Dates: start: 2016

REACTIONS (9)
  - Dehydration [Recovered/Resolved]
  - Haematochezia [Recovered/Resolved]
  - Influenza [Recovered/Resolved]
  - Diarrhoea [Recovered/Resolved]
  - Incorrect dose administered [Unknown]
  - Crohn^s disease [Recovered/Resolved]
  - Dehydration [Recovered/Resolved]
  - Device issue [Unknown]
  - Cytomegalovirus gastrointestinal infection [Recovered/Resolved]

NARRATIVE: CASE EVENT DATE: 201701
